FAERS Safety Report 6804523-7 (Version None)
Quarter: 2010Q2

REPORT INFORMATION
  Report Type: 
  Country: None (occurrence: None)
  Receive Date: 20100628
  Receipt Date: 20070519
  Transmission Date: 20101027
  Serious: No
  Sender: FDA-Public Use
  Company Number: US-PFIZER INC-2007026996

PATIENT
  Sex: Female

DRUGS (1)
  1. CADUET [Suspect]
     Dates: start: 20050101, end: 20050101

REACTIONS (1)
  - FLUSHING [None]
